FAERS Safety Report 23297890 (Version 3)
Quarter: 2023Q4

REPORT INFORMATION
  Report Type: Spontaneous
  Country: DK (occurrence: None)
  Receive Date: 20231214
  Receipt Date: 20231227
  Transmission Date: 20240110
  Serious: Yes (Death, Other)
  Sender: FDA-Public Use
  Company Number: 2023A282463

PATIENT
  Age: 80 Year
  Sex: Male

DRUGS (12)
  1. GEFITINIB [Suspect]
     Active Substance: GEFITINIB
     Indication: Non-small cell lung cancer metastatic
     Route: 048
  2. GEFITINIB [Suspect]
     Active Substance: GEFITINIB
     Indication: EGFR gene mutation
     Route: 048
  3. OSIMERTINIB [Suspect]
     Active Substance: OSIMERTINIB
     Indication: Non-small cell lung cancer metastatic
     Route: 048
  4. OSIMERTINIB [Suspect]
     Active Substance: OSIMERTINIB
     Indication: EGFR gene mutation
     Route: 048
  5. OSIMERTINIB [Suspect]
     Active Substance: OSIMERTINIB
     Indication: Non-small cell lung cancer metastatic
     Route: 048
  6. OSIMERTINIB [Suspect]
     Active Substance: OSIMERTINIB
     Indication: EGFR gene mutation
     Route: 048
  7. ATEZOLIZUMAB [Suspect]
     Active Substance: ATEZOLIZUMAB
     Indication: EGFR gene mutation
  8. ATEZOLIZUMAB [Suspect]
     Active Substance: ATEZOLIZUMAB
     Indication: Non-small cell lung cancer metastatic
  9. AFATINIB [Suspect]
     Active Substance: AFATINIB
     Indication: Non-small cell lung cancer metastatic
  10. AFATINIB [Suspect]
     Active Substance: AFATINIB
     Indication: EGFR gene mutation
  11. CRIZOTINIB [Suspect]
     Active Substance: CRIZOTINIB
     Indication: Non-small cell lung cancer metastatic
  12. CRIZOTINIB [Suspect]
     Active Substance: CRIZOTINIB
     Indication: EGFR gene mutation

REACTIONS (4)
  - Performance status decreased [Fatal]
  - Acquired gene mutation [Unknown]
  - Malignant neoplasm progression [Unknown]
  - Gastrointestinal toxicity [Unknown]
